FAERS Safety Report 5973388-8 (Version None)
Quarter: 2008Q4

REPORT INFORMATION
  Report Type: 
  Country: None (occurrence: None)
  Receive Date: 20081201
  Receipt Date: 20081123
  Transmission Date: 20090506
  Serious: Yes (Hospitalization)
  Sender: FDA-Public Use
  Company Number: BE-JNJFOC-20080800743

PATIENT
  Sex: Male
  Weight: 72.8 kg

DRUGS (8)
  1. METHYLPHENIDATE HCL [Suspect]
     Route: 048
  2. METHYLPHENIDATE HCL [Suspect]
     Indication: ATTENTION DEFICIT/HYPERACTIVITY DISORDER
     Route: 048
  3. METFORMIN HCL [Concomitant]
     Route: 048
  4. METFORMIN HCL [Concomitant]
     Route: 048
  5. METFORMIN HCL [Concomitant]
     Indication: DIABETES MELLITUS
     Route: 048
  6. ATORVASTATIN CALCIUM [Concomitant]
     Indication: HYPERCHOLESTEROLAEMIA
     Route: 048
  7. DULOXETINE [Concomitant]
     Indication: DEPRESSION
     Route: 048
  8. TRAZODONE HCL [Concomitant]
     Indication: INSOMNIA
     Route: 048

REACTIONS (3)
  - ABNORMAL BEHAVIOUR [None]
  - RESTLESSNESS [None]
  - ROAD TRAFFIC ACCIDENT [None]
